FAERS Safety Report 13415750 (Version 2)
Quarter: 2017Q3

REPORT INFORMATION
  Report Type: Spontaneous
  Country: FR (occurrence: FR)
  Receive Date: 20170407
  Receipt Date: 20170802
  Transmission Date: 20171127
  Serious: Yes (Death)
  Sender: FDA-Public Use
  Company Number: FR-TEVA-756956ROM

PATIENT
  Age: 57 Year
  Sex: Male

DRUGS (11)
  1. FLUDARABINE TEVA 25 MG/ML [Suspect]
     Active Substance: FLUDARABINE PHOSPHATE
     Indication: STEM CELL TRANSPLANT
     Dosage: 85 MILLIGRAM DAILY; TBF PROTOCOL, 40MG/M2, CONCENTRATE FOR SOLUTION FOR INJECTION OR INFUSION
     Route: 042
     Dates: start: 20170216, end: 20170219
  2. CICLOSPORIN [Concomitant]
     Active Substance: CYCLOSPORINE
     Route: 065
  3. HEPARIN [Concomitant]
     Active Substance: HEPARIN SODIUM
     Route: 065
  4. THIOTEPA. [Concomitant]
     Active Substance: THIOTEPA
     Dosage: 5 MG/KG DAILY; TBF PROTOCOL
     Route: 065
     Dates: start: 20170216, end: 20170217
  5. BUSILVEX 6 MG/ML [Suspect]
     Active Substance: BUSULFAN
     Indication: STEM CELL TRANSPLANT
     Route: 042
     Dates: start: 20170216, end: 20170218
  6. RASBURICASE [Concomitant]
     Active Substance: RASBURICASE
     Route: 065
  7. FUROSEMIDE. [Concomitant]
     Active Substance: FUROSEMIDE
     Route: 065
  8. NEFOPAM HYDROCHLORIDE [Concomitant]
     Active Substance: NEFOPAM HYDROCHLORIDE
     Route: 065
  9. METOCLOPRAMIDE. [Concomitant]
     Active Substance: METOCLOPRAMIDE
     Route: 065
  10. THYMOGLOBULINE [Concomitant]
     Active Substance: LAPINE T-LYMPHOCYTE IMMUNE GLOBULIN
     Dosage: 2.5 MG/KG DAILY;
     Route: 065
     Dates: start: 20170216, end: 20170217
  11. PARACETAMOL [Concomitant]
     Active Substance: ACETAMINOPHEN
     Route: 065

REACTIONS (1)
  - Venoocclusive liver disease [Fatal]

NARRATIVE: CASE EVENT DATE: 20170222
